FAERS Safety Report 5286119-4 (Version None)
Quarter: 2007Q1

REPORT INFORMATION
  Report Type: 
  Country: None (occurrence: None)
  Receive Date: 20070104
  Receipt Date: 20060818
  Transmission Date: 20070707
  Serious: No
  Sender: FDA-Public Use
  Company Number: BDI-008539

PATIENT
  Age: 74 Year
  Sex: Male

DRUGS (1)
  1. MULTIHANCE [Suspect]
     Indication: NUCLEAR MAGNETIC RESONANCE IMAGING
     Dosage: 20 ML ONCE IV
     Route: 042
     Dates: start: 20060807, end: 20060807

REACTIONS (2)
  - PRURITUS [None]
  - URTICARIA [None]
